FAERS Safety Report 9188227 (Version 7)
Quarter: 2014Q2

REPORT INFORMATION
  Report Type: Report from Study
  Country: US (occurrence: US)
  Receive Date: 20130325
  Receipt Date: 20140513
  Transmission Date: 20141212
  Serious: Yes (Death, Life-Threatening, Hospitalization)
  Sender: FDA-Public Use
  Company Number: US-MERCK-1303USA011713

PATIENT
  Age: 62 Year
  Sex: Female
  Weight: 88 kg

DRUGS (3)
  1. VICTRELIS [Suspect]
     Indication: CHRONIC HEPATITIS C
     Dosage: 2400 MG, MOST RECENT DOSE ON 04-FEB-2013
     Route: 048
     Dates: start: 20121021
  2. REBETOL [Suspect]
     Indication: CHRONIC HEPATITIS C
     Dosage: 1000 MG, MOST RECENT DOSE ON 04-FEB-2013
     Route: 048
     Dates: start: 20120923
  3. PEGINTERFERON ALFA-2A [Suspect]
     Indication: CHRONIC HEPATITIS C
     Dosage: 180 MICROGRAM (RECENT DOSE ON 03-FEB-2013)
     Route: 065
     Dates: start: 20120923

REACTIONS (6)
  - Urinary tract infection [Fatal]
  - Urine output decreased [Fatal]
  - Hypophagia [Fatal]
  - Hypoglycaemia [Fatal]
  - Multi-organ failure [Fatal]
  - Hypotension [Fatal]
